FAERS Safety Report 12475902 (Version 1)
Quarter: 2016Q2

REPORT INFORMATION
  Report Type: Spontaneous
  Country: IT (occurrence: IT)
  Receive Date: 20160617
  Receipt Date: 20160617
  Transmission Date: 20160815
  Serious: Yes (Death)
  Sender: FDA-Public Use
  Company Number: IT-PFIZER INC-2016291174

PATIENT
  Age: 75 Year
  Sex: Male

DRUGS (2)
  1. CARBOPLATIN. [Suspect]
     Active Substance: CARBOPLATIN
     Indication: LUNG NEOPLASM MALIGNANT
     Dosage: 450 MG, CYCLIC
     Route: 042
  2. GEMCITABINE HYDROCHLORIDE. [Suspect]
     Active Substance: GEMCITABINE HYDROCHLORIDE
     Indication: LUNG NEOPLASM MALIGNANT
     Dosage: 1500 MG, CYCLIC
     Route: 042

REACTIONS (4)
  - Dysarthria [Fatal]
  - Hyperhidrosis [Fatal]
  - Loss of consciousness [Fatal]
  - Dyspnoea [Fatal]

NARRATIVE: CASE EVENT DATE: 20160601
